FAERS Safety Report 8395279-8 (Version None)
Quarter: 2012Q2

REPORT INFORMATION
  Report Type: 
  Country: None (occurrence: None)
  Receive Date: 20120530
  Receipt Date: 20120525
  Transmission Date: 20120825
  Serious: Yes (Hospitalization)
  Sender: FDA-Public Use
  Company Number: PHHY2012BR045539

PATIENT
  Sex: Female

DRUGS (2)
  1. FORMOTEROL FUMARATE [Suspect]
     Dosage: UNK UKN, UNK
  2. ONBREZ [Suspect]
     Dosage: 150 UG, UNK
     Dates: start: 20120517

REACTIONS (1)
  - PNEUMONIA [None]
